FAERS Safety Report 24205657 (Version 2)
Quarter: 2024Q3

REPORT INFORMATION
  Report Type: Spontaneous
  Country: US (occurrence: US)
  Receive Date: 20240813
  Receipt Date: 20240820
  Transmission Date: 20241016
  Serious: Yes (Other)
  Sender: RUBICON RESEARCH
  Company Number: US-Rubicon research Pvt ltd-2024000041

PATIENT
  Age: 31 Year
  Sex: Male

DRUGS (2)
  1. CLONAZEPAM [Suspect]
     Active Substance: CLONAZEPAM
     Indication: Post-traumatic stress disorder
     Dosage: (1 MG 2 TIMES IN A DAY)
     Route: 065
     Dates: start: 20240622, end: 20240710
  2. Testosterone C 25mg [Concomitant]
     Indication: Product used for unknown indication
     Dosage: 25MG WEEKLY FOR 4 YEARS
     Route: 065

REACTIONS (8)
  - Seizure [Recovering/Resolving]
  - Withdrawal syndrome [Recovering/Resolving]
  - Quality of life decreased [Unknown]
  - Anxiety [Unknown]
  - Headache [Recovering/Resolving]
  - Drug ineffective for unapproved indication [Unknown]
  - Product substitution issue [Unknown]
  - Off label use [Unknown]

NARRATIVE: CASE EVENT DATE: 20240624
